FAERS Safety Report 10098200 (Version 2)
Quarter: 2014Q2

REPORT INFORMATION
  Report Type: Spontaneous
  Country: US (occurrence: US)
  Receive Date: 20140423
  Receipt Date: 20140423
  Transmission Date: 20141212
  Serious: No
  Sender: FDA-Public Use
  Company Number: US-BRISTOL-MYERS SQUIBB COMPANY-20028650

PATIENT
  Age: 66 Year
  Sex: Male
  Weight: 100.68 kg

DRUGS (9)
  1. YERVOY [Suspect]
     Indication: MALIGNANT MELANOMA
     Dosage: DOSAGE:300MG (2.8631 MG/KG) OVER 90MINS FOR 1DAY IN NS 205ML (1)
     Route: 042
     Dates: start: 20131216, end: 20140106
  2. PREDNISONE [Concomitant]
     Route: 048
  3. PROCHLORPERAZINE MALEATE [Concomitant]
     Dosage: DOSAGE:Q4 TO 6HRS PRN
     Route: 048
  4. ALPRAZOLAM [Concomitant]
     Route: 048
  5. AMBIEN [Concomitant]
     Route: 048
  6. FLUOXETINE HCL [Concomitant]
     Route: 048
  7. HYDROCHLOROTHIAZIDE [Concomitant]
     Route: 048
  8. LISINOPRIL [Concomitant]
     Route: 048
  9. VICODIN [Concomitant]
     Dosage: 1 DF: 1 TABS (5-500MG)?THREE/DAY PRN
     Route: 048

REACTIONS (2)
  - Nervous system disorder [Recovering/Resolving]
  - Diarrhoea [Recovered/Resolved]
